FAERS Safety Report 16064535 (Version 1)
Quarter: 2019Q1

REPORT INFORMATION
  Report Type: Spontaneous
  Country: FR (occurrence: FR)
  Receive Date: 20190312
  Receipt Date: 20190312
  Transmission Date: 20190418
  Serious: Yes (Hospitalization)
  Sender: FDA-Public Use
  Company Number: FR-MYLANLABS-2019M1022544

PATIENT
  Age: 41 Year
  Sex: Male

DRUGS (1)
  1. ALPRAZOLAM MYLAN 0.25 MG, COMPRIM? S?CABLE [Suspect]
     Active Substance: ALPRAZOLAM
     Indication: ANXIETY DISORDER
     Dosage: 0.5 MILLIGRAM, QD
     Route: 048
     Dates: start: 20180802

REACTIONS (1)
  - Toxic epidermal necrolysis [Not Recovered/Not Resolved]

NARRATIVE: CASE EVENT DATE: 20180826
